FAERS Safety Report 4949941-7 (Version None)
Quarter: 2006Q1

REPORT INFORMATION
  Report Type: 
  Country: None (occurrence: None)
  Receive Date: 20060316
  Receipt Date: 20060310
  Transmission Date: 20060701
  Serious: Yes (Life-Threatening, Hospitalization, Other)
  Sender: FDA-Public Use
  Company Number: 200513122BWH

PATIENT
  Age: 63 Year
  Sex: Male
  Weight: 72 kg

DRUGS (24)
  1. SORAFENIB [Suspect]
     Indication: METASTATIC RENAL CELL CARCINOMA
     Dosage: 400 MG, ONCE, ORAL; 400 MG, BID, ORAL
     Route: 048
     Dates: start: 20051127, end: 20051207
  2. SORAFENIB [Suspect]
     Indication: METASTATIC RENAL CELL CARCINOMA
     Dosage: 400 MG, ONCE, ORAL; 400 MG, BID, ORAL
     Route: 048
     Dates: start: 20051209, end: 20051214
  3. SORAFENIB [Suspect]
     Indication: METASTATIC RENAL CELL CARCINOMA
     Dosage: 400 MG, ONCE, ORAL; 400 MG, BID, ORAL
     Route: 048
     Dates: start: 20051216, end: 20051226
  4. SORAFENIB [Suspect]
     Indication: METASTATIC RENAL CELL CARCINOMA
     Dosage: 400 MG, ONCE, ORAL; 400 MG, BID, ORAL
     Route: 048
     Dates: start: 20060123, end: 20060128
  5. SORAFENIB [Suspect]
     Indication: METASTATIC RENAL CELL CARCINOMA
     Dosage: 400 MG, ONCE, ORAL; 400 MG, BID, ORAL
     Route: 048
     Dates: start: 20051123
  6. ATENOLOL [Concomitant]
  7. HUMULIN R [Concomitant]
  8. LANTUS [Concomitant]
  9. OXYCONTIN [Concomitant]
  10. PERCOCET [Concomitant]
  11. TOPAMAX [Concomitant]
  12. TRAZODONE HCL [Concomitant]
  13. HYDRALAZINE HYDROCHLORIDE [Concomitant]
  14. HYDROCHLOROTHIAZIDE [Concomitant]
  15. NOVOLOG [Concomitant]
  16. LISINOPRIL [Concomitant]
  17. NORVASC [Concomitant]
  18. REGLAN [Concomitant]
  19. TOPROL-XL [Concomitant]
  20. FLAGYL [Concomitant]
  21. CEFTRIAXONE [Concomitant]
  22. HYDROMORPHINE [Concomitant]
  23. PHENERGAN HCL [Concomitant]
  24. ZOFRAN [Concomitant]

REACTIONS (11)
  - ATRIOVENTRICULAR BLOCK [None]
  - CARDIAC VALVE DISEASE [None]
  - CORONARY ARTERY DISEASE [None]
  - DUODENAL ULCER [None]
  - DUODENAL ULCER HAEMORRHAGE [None]
  - ILEUS [None]
  - MYOCARDIAL INFARCTION [None]
  - NEPHRECTOMY [None]
  - SYNCOPE [None]
  - ULCER [None]
  - VENTRICULAR HYPERTROPHY [None]
